FAERS Safety Report 17676955 (Version 1)
Quarter: 2020Q2

REPORT INFORMATION
  Report Type: Spontaneous
  Country: FR (occurrence: FR)
  Receive Date: 20200416
  Receipt Date: 20200416
  Transmission Date: 20200714
  Serious: Yes (Hospitalization)
  Sender: FDA-Public Use
  Company Number: FR-009507513-2004FRA004089

PATIENT
  Sex: Female
  Weight: 73 kg

DRUGS (2)
  1. CORTANCYL [Suspect]
     Active Substance: PREDNISONE
     Indication: TOXOCARIASIS
     Dosage: 1500 MG, ONCE (1 TOTAL)
     Route: 048
     Dates: start: 201810, end: 201810
  2. BETAMETHASONE. [Suspect]
     Active Substance: BETAMETHASONE
     Indication: TOOTH ABSCESS
     Dosage: 12 MILLIGRAM, QD
     Route: 048
     Dates: start: 201809, end: 201809

REACTIONS (2)
  - Osteonecrosis [Recovered/Resolved with Sequelae]
  - Pain [Recovered/Resolved with Sequelae]

NARRATIVE: CASE EVENT DATE: 20181024
